FAERS Safety Report 20230064 (Version 1)
Quarter: 2021Q4

REPORT INFORMATION
  Report Type: Report from Study
  Country: NL (occurrence: NL)
  Receive Date: 20211226
  Receipt Date: 20211226
  Transmission Date: 20220303
  Serious: Yes (Other)
  Sender: FDA-Public Use
  Company Number: NL-TEVA-2021-NL-1990841

PATIENT
  Age: 56 Year
  Sex: Female

DRUGS (3)
  1. AJOVY [Suspect]
     Active Substance: FREMANEZUMAB-VFRM
     Indication: Migraine
     Route: 058
     Dates: start: 20211209
  2. VENLAFAXINE [Concomitant]
     Active Substance: VENLAFAXINE HYDROCHLORIDE
     Indication: Antidepressant therapy
     Dosage: 150 MILLIGRAM DAILY;
     Route: 048
  3. SUMATRIPTAN [Concomitant]
     Active Substance: SUMATRIPTAN
     Indication: Migraine
     Route: 048

REACTIONS (5)
  - Hallucination [Recovered/Resolved]
  - Nightmare [Recovered/Resolved]
  - Somnolence [Recovered/Resolved]
  - Fatigue [Recovered/Resolved]
  - Head discomfort [Recovered/Resolved]

NARRATIVE: CASE EVENT DATE: 20211210
